FAERS Safety Report 10490694 (Version 1)
Quarter: 2014Q4

REPORT INFORMATION
  Report Type: Spontaneous
  Country: US (occurrence: US)
  Receive Date: 20141002
  Receipt Date: 20141002
  Transmission Date: 20150528
  Serious: No
  Sender: FDA-Public Use
  Company Number: US-GLAXOSMITHKLINE-A1040092A

PATIENT
  Age: 72 Year
  Sex: Female

DRUGS (13)
  1. TRAZODONE [Concomitant]
     Active Substance: TRAZODONE HYDROCHLORIDE
  2. UNSPECIFIED MEDICATIONS [Concomitant]
     Active Substance: UNSPECIFIED INGREDIENT
  3. NASONEX [Concomitant]
     Active Substance: MOMETASONE FUROATE
  4. MONTELUKAST [Concomitant]
     Active Substance: MONTELUKAST SODIUM
  5. WARFARIN [Concomitant]
     Active Substance: WARFARIN
  6. LEVOTHYROXINE [Concomitant]
     Active Substance: LEVOTHYROXINE
  7. TRIAMTERENE. [Concomitant]
     Active Substance: TRIAMTERENE
  8. ALBUTEROL INHALER [Concomitant]
     Active Substance: ALBUTEROL
  9. IMIPRAMINE [Concomitant]
     Active Substance: IMIPRAMINE
  10. ADVAIR HFA [Suspect]
     Active Substance: FLUTICASONE PROPIONATE\SALMETEROL XINAFOATE
     Indication: ASTHMA
     Dosage: 1PUFF PER DAY
     Route: 055
  11. PRILOSEC [Concomitant]
     Active Substance: OMEPRAZOLE MAGNESIUM
  12. PRIMIDONE. [Concomitant]
     Active Substance: PRIMIDONE
  13. METOPROLOL XL [Concomitant]
     Active Substance: METOPROLOL

REACTIONS (7)
  - Asthma [Unknown]
  - Chest discomfort [Unknown]
  - Wheezing [Unknown]
  - Treatment noncompliance [Unknown]
  - Insomnia [Unknown]
  - Cough [Unknown]
  - Drug ineffective [Unknown]

NARRATIVE: CASE EVENT DATE: 201308
